FAERS Safety Report 6945538-8 (Version None)
Quarter: 2010Q3

REPORT INFORMATION
  Report Type: 
  Country: None (occurrence: None)
  Receive Date: 20100827
  Receipt Date: 20100823
  Transmission Date: 20110219
  Serious: Yes (Hospitalization, Disabling)
  Sender: FDA-Public Use
  Company Number: US-BAYER-201031411NA

PATIENT
  Sex: Female

DRUGS (3)
  1. AVELOX [Suspect]
     Indication: ANTIBIOTIC THERAPY
     Dosage: AS USED: 400 MG  UNIT DOSE: 400 MG
     Route: 048
     Dates: start: 20100601, end: 20100101
  2. CYMBACORT [Concomitant]
  3. LODRANE [Concomitant]

REACTIONS (3)
  - MALAISE [None]
  - PALPITATIONS [None]
  - PRURITUS [None]
